FAERS Safety Report 9305581 (Version 1)
Quarter: 2013Q2

REPORT INFORMATION
  Report Type: Spontaneous
  Country: US (occurrence: US)
  Receive Date: 20130523
  Receipt Date: 20130523
  Transmission Date: 20140414
  Serious: Yes (Other)
  Sender: FDA-Public Use
  Company Number: US-ROCHE-1037718

PATIENT
  Age: 19 Year
  Sex: Male
  Weight: 72.64 kg

DRUGS (1)
  1. ACCUTANE [Suspect]
     Indication: ACNE
     Route: 048
     Dates: start: 20001027, end: 200104

REACTIONS (7)
  - Colitis ulcerative [Unknown]
  - Panic attack [Not Recovered/Not Resolved]
  - Inflammatory bowel disease [Unknown]
  - Suicidal ideation [Unknown]
  - Back pain [Unknown]
  - Rash erythematous [Unknown]
  - Rash pruritic [Unknown]
